FAERS Safety Report 7703246-X (Version None)
Quarter: 2011Q3

REPORT INFORMATION
  Report Type: 
  Country: None (occurrence: None)
  Receive Date: 20110817
  Receipt Date: 20110802
  Transmission Date: 20111222
  Serious: Yes (Death)
  Sender: FDA-Public Use
  Company Number: B0738629A

PATIENT

DRUGS (6)
  1. MESNA [Concomitant]
  2. ANTI-EMETIC [Concomitant]
  3. IFOSFAMIDE [Suspect]
     Dosage: INTRAVENOUS
     Route: 042
  4. TOPOTECAN HYDROCHLORIDE [Suspect]
     Indication: CENTRAL NERVOUS SYSTEM NEOPLASM
     Dosage: INTRAVENOUS
     Route: 042
  5. DEXAMETHASONE [Suspect]
  6. HYDRATION THERAPY [Concomitant]

REACTIONS (1)
  - DEATH [None]
